FAERS Safety Report 8195960-X (Version None)
Quarter: 2012Q1

REPORT INFORMATION
  Report Type: 
  Country: None (occurrence: None)
  Receive Date: 20120309
  Receipt Date: 20120229
  Transmission Date: 20120608
  Serious: Yes (Hospitalization)
  Sender: FDA-Public Use
  Company Number: US-BIOGENIDEC-2012BI000503

PATIENT
  Age: 40 Year
  Sex: Female

DRUGS (2)
  1. TYSABRI [Suspect]
     Indication: MULTIPLE SCLEROSIS
     Route: 042
     Dates: start: 20070315, end: 20100518
  2. TYSABRI [Suspect]
     Route: 042
     Dates: start: 20101110, end: 20110816

REACTIONS (4)
  - MULTIPLE SCLEROSIS RELAPSE [None]
  - THERMAL BURN [None]
  - MULTIPLE SCLEROSIS [None]
  - SECONDARY PROGRESSIVE MULTIPLE SCLEROSIS [None]
